FAERS Safety Report 7820942-4 (Version None)
Quarter: 2011Q4

REPORT INFORMATION
  Report Type: 
  Country: None (occurrence: None)
  Receive Date: 20111018
  Receipt Date: 20111010
  Transmission Date: 20120403
  Serious: Yes (Other)
  Sender: FDA-Public Use
  Company Number: ZA-GLAXOSMITHKLINE-B0756184A

PATIENT
  Age: 53 Year
  Sex: Male

DRUGS (1)
  1. ATOVAQUONE [Suspect]
     Indication: MALARIA PROPHYLAXIS
     Route: 065

REACTIONS (4)
  - SKIN EXFOLIATION [None]
  - SKIN HYPERTROPHY [None]
  - HEPATIC ENZYME INCREASED [None]
  - RASH [None]
